FAERS Safety Report 9748490 (Version 3)
Quarter: 2014Q1

REPORT INFORMATION
  Report Type: Report from Study
  Country: US (occurrence: US)
  Receive Date: 20131212
  Receipt Date: 20140114
  Transmission Date: 20141002
  Serious: Yes (Hospitalization)
  Sender: FDA-Public Use
  Company Number: US-JNJFOC-20131203671

PATIENT
  Age: 15 Year
  Sex: Male
  Weight: 45.2 kg

DRUGS (11)
  1. REMICADE [Suspect]
     Indication: INFLAMMATORY BOWEL DISEASE
     Route: 042
     Dates: start: 20111230, end: 20120521
  2. 6-MERCAPTOPURINE [Concomitant]
     Route: 065
  3. PULMOZYME [Concomitant]
     Route: 065
  4. HYPERTONIC SOLUTIONS [Concomitant]
     Route: 065
  5. PRILOSEC [Concomitant]
     Route: 065
  6. ALBUTEROL [Concomitant]
     Route: 065
  7. FLUTICASONE [Concomitant]
     Route: 065
  8. AQUADEK [Concomitant]
     Route: 065
  9. TWOCAL HN [Concomitant]
     Route: 065
  10. CREON [Concomitant]
     Route: 065
  11. VITAMIN D [Concomitant]
     Route: 065

REACTIONS (1)
  - Infective pulmonary exacerbation of cystic fibrosis [Recovered/Resolved]
